FAERS Safety Report 8543279-7 (Version None)
Quarter: 2012Q3

REPORT INFORMATION
  Report Type: 
  Country: None (occurrence: None)
  Receive Date: 20120719
  Receipt Date: 20120719
  Transmission Date: 20120928
  Serious: Yes (Death)
  Sender: FDA-Public Use
  Company Number: None

PATIENT
  Age: 68 Year
  Sex: Male
  Weight: 77 kg

DRUGS (1)
  1. PROFILNINE SD [Suspect]
     Indication: SUBDURAL HAEMATOMA
     Dosage: 3850 UNITS IV; 1925 UNITS IV
     Route: 042
     Dates: start: 20120527, end: 20120527

REACTIONS (4)
  - HAEMORRHAGE [None]
  - HYPOTENSION [None]
  - MYOCARDIAL ISCHAEMIA [None]
  - RESPIRATORY DISORDER [None]
